FAERS Safety Report 18843574 (Version 1)
Quarter: 2021Q1

REPORT INFORMATION
  Report Type: Report from Study
  Country: US (occurrence: US)
  Receive Date: 20210203
  Receipt Date: 20210203
  Transmission Date: 20210419
  Serious: No
  Sender: FDA-Public Use
  Company Number: US-EXELIXIS-CABO-20028502

PATIENT
  Sex: Male

DRUGS (2)
  1. CABOMETYX [Suspect]
     Active Substance: CABOZANTINIB S-MALATE
     Indication: MALIGNANT NEOPLASM OF RENAL PELVIS
  2. CABOMETYX [Suspect]
     Active Substance: CABOZANTINIB S-MALATE
     Indication: RENAL CELL CARCINOMA
     Dosage: 60 MG, QD (AT 6 AM WITHOUT FOOD)
     Route: 048
     Dates: start: 20200223

REACTIONS (10)
  - Hyperkeratosis [Recovered/Resolved]
  - Pruritus [Recovered/Resolved]
  - Taste disorder [Unknown]
  - Vomiting [Unknown]
  - Decreased appetite [Unknown]
  - Ageusia [Not Recovered/Not Resolved]
  - Diarrhoea [Recovering/Resolving]
  - Nausea [Not Recovered/Not Resolved]
  - Weight decreased [Unknown]
  - Toothache [Not Recovered/Not Resolved]
